FAERS Safety Report 25566322 (Version 2)
Quarter: 2025Q3

REPORT INFORMATION
  Report Type: Spontaneous
  Country: CA (occurrence: CA)
  Receive Date: 20250716
  Receipt Date: 20250725
  Transmission Date: 20251020
  Serious: No
  Sender: PFIZER
  Company Number: CA-PFIZER INC-202500142722

PATIENT
  Age: 45 Year
  Sex: Male

DRUGS (1)
  1. IXIFI [Suspect]
     Active Substance: INFLIXIMAB-QBTX
     Indication: Colitis ulcerative
     Route: 042
     Dates: start: 20250618

REACTIONS (3)
  - Presyncope [Not Recovered/Not Resolved]
  - Heat stroke [Unknown]
  - Decreased appetite [Not Recovered/Not Resolved]
